FAERS Safety Report 20063247 (Version 1)
Quarter: 2021Q4

REPORT INFORMATION
  Report Type: Report from Study
  Country: ZA (occurrence: ZA)
  Receive Date: 20211112
  Receipt Date: 20211112
  Transmission Date: 20220303
  Serious: Yes (Death, Other)
  Sender: FDA-Public Use
  Company Number: ZA-SA-SAC20210217000040

PATIENT
  Age: 33 Year
  Sex: Male

DRUGS (1)
  1. TERIFLUNOMIDE [Suspect]
     Active Substance: TERIFLUNOMIDE
     Indication: Relapsing-remitting multiple sclerosis
     Dosage: 14 MG, QD
     Route: 048
     Dates: start: 20170727

REACTIONS (2)
  - Death [Fatal]
  - Lhermitte^s sign [Recovered/Resolved]

NARRATIVE: CASE EVENT DATE: 20200801
